FAERS Safety Report 9552930 (Version 1)
Quarter: 2013Q3

REPORT INFORMATION
  Report Type: Spontaneous
  Country: US (occurrence: None)
  Receive Date: 20130724
  Receipt Date: 20130724
  Transmission Date: 20140515
  Serious: Yes (Other)
  Sender: FDA-Public Use
  Company Number: PHEH2013US003021

PATIENT
  Age: 59 Year
  Sex: Male

DRUGS (7)
  1. GLEEVEC [Suspect]
     Indication: GASTROINTESTINAL STROMAL TUMOUR
     Route: 048
     Dates: start: 20121221
  2. SUTENT (SUNITINIB MALATE) [Concomitant]
  3. AMLODIPINE BESYLATE AND BENAZEPRIL HCL (AMLODIPINE BESILATE, BENAZEPRIL HYDROCHLORIDE) [Concomitant]
  4. FIBER (POLYCARBOPHIL CALCIUM) [Concomitant]
  5. MULTIVITAMIN /00097801/ (ASCORBIC ACID, CALCIUM PANTOTHENATE, ERGOCALCIFEROL, NICOTINAMIDE, PYRIDOXINE HYDROCHLORIDE, RETINOL, RIBOFLAVIN, THIAMINE HYDROCHLORIDE) [Concomitant]
  6. VITAMIN D (ERGOCALCIFEROL) [Concomitant]
  7. IRON (IRON) [Concomitant]

REACTIONS (19)
  - Gastrointestinal stromal tumour [None]
  - Malignant neoplasm progression [None]
  - Hypertension [None]
  - Metastases to liver [None]
  - Palpitations [None]
  - Obesity [None]
  - Body mass index increased [None]
  - Hypercholesterolaemia [None]
  - Body temperature increased [None]
  - Nausea [None]
  - Abdominal discomfort [None]
  - Dyspnoea [None]
  - Abdominal pain lower [None]
  - Drug resistance [None]
  - Drug ineffective [None]
  - Heart rate increased [None]
  - Abdominal mass [None]
  - Soft tissue disorder [None]
  - Ascites [None]
